FAERS Safety Report 15087926 (Version 1)
Quarter: 2018Q2

REPORT INFORMATION
  Report Type: Spontaneous
  Country: FR (occurrence: FR)
  Receive Date: 20180629
  Receipt Date: 20180629
  Transmission Date: 20180711
  Serious: Yes (Hospitalization)
  Sender: FDA-Public Use
  Company Number: FR-ACCORD-069179

PATIENT
  Age: 73 Year
  Sex: Female
  Weight: 63 kg

DRUGS (2)
  1. ADRIBLASTINE [Suspect]
     Active Substance: DOXORUBICIN
     Indication: OVARIAN CANCER
     Dosage: UNSPECIFIED
     Route: 033
     Dates: start: 20180116, end: 20180116
  2. CISPLATIN ACCORD [Suspect]
     Active Substance: CISPLATIN
     Indication: OVARIAN CANCER
     Dosage: STRENGTH:1 MG/ML
     Route: 033
     Dates: start: 20180116, end: 20180116

REACTIONS (2)
  - Cardiac failure [Recovered/Resolved]
  - Acute kidney injury [Recovered/Resolved]

NARRATIVE: CASE EVENT DATE: 20180117
